FAERS Safety Report 10393682 (Version 1)
Quarter: 2014Q3

REPORT INFORMATION
  Report Type: Spontaneous
  Country: GB (occurrence: None)
  Receive Date: 20140815
  Receipt Date: 20140815
  Transmission Date: 20150326
  Serious: Yes (Hospitalization)
  Sender: FDA-Public Use
  Company Number: CC400226880

PATIENT
  Age: 48 Year
  Sex: Male

DRUGS (3)
  1. 0.9% SODIUM CHLORIDE WITH POTASSIUM [Suspect]
     Active Substance: POTASSIUM CHLORIDE\SODIUM CHLORIDE
     Indication: HYPONATRAEMIA
  2. THIAMINE [Concomitant]
     Active Substance: THIAMINE
  3. CHLORDIAZEPOXIDE [Concomitant]
     Active Substance: CHLORDIAZEPOXIDE

REACTIONS (4)
  - Dysarthria [None]
  - Quadriparesis [None]
  - Osmotic demyelination syndrome [None]
  - Delirium [None]
